FAERS Safety Report 22261450 (Version 1)
Quarter: 2023Q2

REPORT INFORMATION
  Report Type: Spontaneous
  Country: JE (occurrence: JE)
  Receive Date: 20230427
  Receipt Date: 20230427
  Transmission Date: 20230721
  Serious: Yes (Hospitalization, Other)
  Sender: FDA-Public Use
  Company Number: JE-ETHYPHARM-2023000885

PATIENT
  Age: 49 Year
  Sex: Male

DRUGS (1)
  1. BUPRENORPHINE HYDROCHLORIDE [Suspect]
     Active Substance: BUPRENORPHINE HYDROCHLORIDE
     Indication: Product used for unknown indication
     Route: 042
     Dates: start: 202109

REACTIONS (6)
  - Deep vein thrombosis [Unknown]
  - Intentional product use issue [Unknown]
  - Pain [Unknown]
  - Pain [Unknown]
  - Night sweats [Unknown]
  - Drug abuse [Unknown]

NARRATIVE: CASE EVENT DATE: 20210901
